FAERS Safety Report 12898861 (Version 1)
Quarter: 2016Q4

REPORT INFORMATION
  Report Type: Spontaneous
  Country: MX (occurrence: MX)
  Receive Date: 20161101
  Receipt Date: 20161101
  Transmission Date: 20170207
  Serious: Yes (Death, Life-Threatening, Hospitalization, Disabling, Other)
  Sender: FDA-Public Use
  Company Number: MX-BRISTOL-MYERS SQUIBB COMPANY-BMS-2016-091464

PATIENT
  Sex: Female

DRUGS (3)
  1. DAKLINZA [Suspect]
     Active Substance: DACLATASVIR
     Indication: ANTIVIRAL PROPHYLAXIS
     Dosage: 60 MG, QD
     Route: 048
     Dates: start: 201602, end: 201607
  2. CYCLOSPORINE. [Suspect]
     Active Substance: CYCLOSPORINE
     Indication: PRODUCT USED FOR UNKNOWN INDICATION
     Dosage: 1.2-1.7ML
     Route: 065
  3. SOFOSBUVIR [Suspect]
     Active Substance: SOFOSBUVIR
     Indication: ANTIVIRAL PROPHYLAXIS
     Dosage: UNK UNK, QD
     Route: 065
     Dates: start: 201602, end: 201607

REACTIONS (4)
  - Immunosuppression [Fatal]
  - Product use issue [Unknown]
  - Neoplasm malignant [Fatal]
  - Post procedural complication [Fatal]
